FAERS Safety Report 18543540 (Version 2)
Quarter: 2020Q4

REPORT INFORMATION
  Report Type: Spontaneous
  Country: PL (occurrence: PL)
  Receive Date: 20201125
  Receipt Date: 20201126
  Transmission Date: 20210114
  Serious: Yes (Death)
  Sender: FDA-Public Use
  Company Number: PL-ROCHE-2717069

PATIENT
  Age: 65 Year
  Sex: Female

DRUGS (15)
  1. RITUXIMAB. [Suspect]
     Active Substance: RITUXIMAB
     Indication: B-CELL LYMPHOMA
     Dosage: 8 CYCLES
     Route: 065
     Dates: start: 20180528, end: 20181031
  2. PREDNISONE. [Suspect]
     Active Substance: PREDNISONE
     Indication: B-CELL LYMPHOMA
     Dosage: 8 CYCLES
     Route: 065
     Dates: start: 20180528, end: 20181031
  3. ROSUCARD [Concomitant]
     Active Substance: ROSUVASTATIN CALCIUM
  4. MAGNE B6 [Concomitant]
     Active Substance: MAGNESIUM\PYRIDOXINE
  5. METEOSPASMYL [Concomitant]
  6. OBINUTUZUMAB. [Suspect]
     Active Substance: OBINUTUZUMAB
     Indication: B-CELL LYMPHOMA
     Dosage: 4 CYCLES
     Route: 042
     Dates: start: 20200715, end: 20201020
  7. POLOCARD [Concomitant]
     Active Substance: ASPIRIN
  8. BENDAMUSTINE [Suspect]
     Active Substance: BENDAMUSTINE
     Indication: B-CELL LYMPHOMA
     Dosage: 4 CYCLES
     Route: 065
     Dates: start: 20200715, end: 20201020
  9. VINCRISTINE SULFATE. [Suspect]
     Active Substance: VINCRISTINE SULFATE
     Indication: B-CELL LYMPHOMA
     Dosage: 8 CYCLES
     Route: 065
     Dates: start: 20180528, end: 20181031
  10. XANAX [Concomitant]
     Active Substance: ALPRAZOLAM
  11. RITUXIMAB. [Suspect]
     Active Substance: RITUXIMAB
     Dosage: 9 DOSES OF RITUXIMAB EVERY 2 MONTHS
     Route: 065
     Dates: start: 20200103, end: 20200519
  12. BIOSOTAL [Concomitant]
  13. KALDYUM [Concomitant]
     Active Substance: POTASSIUM CHLORIDE
  14. CYCLOPHOSPHAMIDE. [Suspect]
     Active Substance: CYCLOPHOSPHAMIDE
     Indication: B-CELL LYMPHOMA
     Dosage: 8 CYCLES
     Route: 065
     Dates: start: 20180528, end: 20181031
  15. CAPTOPRIL. [Concomitant]
     Active Substance: CAPTOPRIL

REACTIONS (6)
  - COVID-19 [Fatal]
  - Oedema peripheral [Unknown]
  - Peripheral swelling [Unknown]
  - Asthenia [Unknown]
  - Cardiac arrest [Fatal]
  - Weight increased [Unknown]

NARRATIVE: CASE EVENT DATE: 202010
